FAERS Safety Report 4367673-3 (Version None)
Quarter: 2004Q2

REPORT INFORMATION
  Report Type: 
  Country: None (occurrence: None)
  Receive Date: 20040601
  Receipt Date: 20040414
  Transmission Date: 20050107
  Serious: Yes (Hospitalization)
  Sender: FDA-Public Use
  Company Number: 2004JP000231

PATIENT
  Age: 2 Year
  Sex: Male
  Weight: 12.4 kg

DRUGS (6)
  1. SAWACILLIN [Suspect]
     Indication: UPPER RESPIRATORY TRACT INFLAMMATION
     Dosage: 4G PER DAY
     Route: 048
     Dates: start: 20040322, end: 20040326
  2. ASVERIN [Concomitant]
     Indication: UPPER RESPIRATORY TRACT INFLAMMATION
     Dosage: .2G PER DAY
     Route: 048
     Dates: start: 20040322, end: 20040328
  3. ACETYLCYSTEINE [Suspect]
     Indication: UPPER RESPIRATORY TRACT INFLAMMATION
     Dosage: .6G PER DAY
     Route: 048
     Dates: start: 20040322, end: 20040328
  4. PERIACTIN [Suspect]
     Indication: UPPER RESPIRATORY TRACT INFLAMMATION
     Dosage: .2G PER DAY
     Route: 048
     Dates: start: 20040322, end: 20040326
  5. ZITHROMAX [Suspect]
     Indication: UPPER RESPIRATORY TRACT INFECTION
     Dosage: 1.1G PER DAY
     Route: 048
     Dates: start: 20040326, end: 20040328
  6. HOKUNALIN [Suspect]
     Indication: UPPER RESPIRATORY TRACT INFLAMMATION
     Dosage: .4G PER DAY
     Route: 048
     Dates: start: 20040322, end: 20040328

REACTIONS (2)
  - ERYTHEMA MULTIFORME [None]
  - PYREXIA [None]
